FAERS Safety Report 8901549 (Version 2)
Quarter: 2013Q2

REPORT INFORMATION
  Report Type: Spontaneous
  Country: CA (occurrence: CA)
  Receive Date: 20121108
  Receipt Date: 20130513
  Transmission Date: 20140414
  Serious: Yes (Other)
  Sender: FDA-Public Use
  Company Number: CHPA2012CA023024

PATIENT
  Age: 77 Year
  Sex: Female

DRUGS (3)
  1. BENEFIBER W/ WHEAT DEXTRIN [Suspect]
     Indication: CONSTIPATION
     Dosage: 2 TSP DAILY
     Route: 048
  2. BENEFIBER STICK PACKS [Suspect]
     Indication: CONSTIPATION
     Dosage: UNK, UNK
     Route: 048
  3. IRON [Concomitant]
     Indication: BLOOD COUNT ABNORMAL
     Dosage: 300 MG DAILY
     Route: 048
     Dates: start: 2012

REACTIONS (4)
  - Full blood count decreased [Unknown]
  - Drug ineffective for unapproved indication [Unknown]
  - Therapeutic response unexpected [Unknown]
  - Underdose [Unknown]
